FAERS Safety Report 6924989-1 (Version None)
Quarter: 2010Q3

REPORT INFORMATION
  Report Type: 
  Country: None (occurrence: None)
  Receive Date: 20100816
  Receipt Date: 20100806
  Transmission Date: 20110219
  Serious: Yes (Hospitalization)
  Sender: FDA-Public Use
  Company Number: FR-KINGPHARMUSA00001-K201000993

PATIENT
  Age: 76 Year
  Sex: Female

DRUGS (10)
  1. ALTACE [Suspect]
     Dosage: 1 DF, QD
     Route: 048
     Dates: end: 20100121
  2. METOZOK [Suspect]
     Dosage: 25 MG, QD
     Route: 048
     Dates: end: 20100121
  3. DIGOXIN [Suspect]
     Dosage: 0.13 MG, QD
     Route: 048
     Dates: end: 20100121
  4. BRIMONIDINE [Concomitant]
  5. TIMOLOL [Concomitant]
  6. WARFARIN SODIUM [Concomitant]
  7. FUROSEMIDE [Concomitant]
  8. BRINZOLAMIDE [Concomitant]
  9. CITALOPRAM [Concomitant]
  10. SPIRONOLACTONE [Concomitant]

REACTIONS (6)
  - ARRHYTHMIA [None]
  - BLOOD CREATININE INCREASED [None]
  - BRADYCARDIA [None]
  - DYSPNOEA [None]
  - FATIGUE [None]
  - PYREXIA [None]
